FAERS Safety Report 6404139-0 (Version None)
Quarter: 2009Q4

REPORT INFORMATION
  Report Type: 
  Country: None (occurrence: None)
  Receive Date: 20091016
  Receipt Date: 20090924
  Transmission Date: 20100525
  Serious: No
  Sender: FDA-Public Use
  Company Number: US-ALEXION-A200900782

PATIENT
  Sex: Male

DRUGS (3)
  1. SOLIRIS [Suspect]
     Indication: PAROXYSMAL NOCTURNAL HAEMOGLOBINURIA
     Dosage: 600 MG, QW
     Route: 042
     Dates: start: 20090918
  2. BENADRYL [Suspect]
     Indication: PREMEDICATION
     Dosage: UNK
     Route: 042
     Dates: start: 20090918, end: 20090918
  3. BENADRYL [Suspect]
     Dosage: UNK
     Route: 042
     Dates: start: 20090925, end: 20090925

REACTIONS (2)
  - FATIGUE [None]
  - SLUGGISHNESS [None]
